FAERS Safety Report 23654801 (Version 2)
Quarter: 2024Q3

REPORT INFORMATION
  Report Type: Spontaneous
  Country: FR (occurrence: FR)
  Receive Date: 20240320
  Receipt Date: 20240820
  Transmission Date: 20241017
  Serious: Yes (Hospitalization)
  Sender: ELI LILLY AND CO
  Company Number: None

PATIENT
  Age: 67 Year
  Sex: Male

DRUGS (2)
  1. GEMCITABINE HYDROCHLORIDE [Suspect]
     Active Substance: GEMCITABINE HYDROCHLORIDE
     Indication: Cholangiocarcinoma
     Dosage: 1976 MG, UNKNOWN
     Route: 042
     Dates: start: 20240122
  2. IMFINZI [Suspect]
     Active Substance: DURVALUMAB
     Indication: Cholangiocarcinoma
     Dosage: 1500 MG, UNKNOWN
     Route: 042
     Dates: start: 20240122

REACTIONS (2)
  - Myocarditis [Unknown]
  - Troponin increased [Recovering/Resolving]

NARRATIVE: CASE EVENT DATE: 20240126
